FAERS Safety Report 5666861-3 (Version None)
Quarter: 2008Q1

REPORT INFORMATION
  Report Type: 
  Country: None (occurrence: None)
  Receive Date: 20080315
  Receipt Date: 20080103
  Transmission Date: 20080703
  Serious: No
  Sender: FDA-Public Use
  Company Number: US-ABBOTT-08P-163-0432428-00

PATIENT
  Sex: Female
  Weight: 67.192 kg

DRUGS (6)
  1. HUMIRA [Suspect]
     Indication: PSORIATIC ARTHROPATHY
     Route: 058
     Dates: start: 20071108
  2. PANCRELIPASE [Concomitant]
     Indication: PANCREATITIS
     Dosage: 2 PILLS DAILY
  3. TRAMADOL HCL [Concomitant]
     Indication: ANALGESIA
  4. MELOXICAM [Concomitant]
     Indication: PAIN
  5. ESTROGENIC SUBSTANCE [Concomitant]
     Indication: HYSTERECTOMY
  6. ESCITALOPRAM OXALATE [Concomitant]
     Indication: ANTIDEPRESSANT THERAPY
     Dates: start: 20070901

REACTIONS (2)
  - HEADACHE [None]
  - NAUSEA [None]
